FAERS Safety Report 24810623 (Version 1)
Quarter: 2025Q1

REPORT INFORMATION
  Report Type: Spontaneous
  Country: US (occurrence: None)
  Receive Date: 20250106
  Receipt Date: 20250106
  Transmission Date: 20250409
  Serious: Yes (Death)
  Sender: FDA-CTU
  Company Number: None

PATIENT
  Age: 83 Year
  Sex: Female
  Weight: 33.11 kg

DRUGS (1)
  1. PRALUENT [Suspect]
     Active Substance: ALIROCUMAB
     Dosage: FREQUENCY : EVERY OTHER WEEK;?
     Dates: start: 20210331, end: 20241111

REACTIONS (1)
  - Death [None]

NARRATIVE: CASE EVENT DATE: 20241111
